FAERS Safety Report 8183769-2 (Version None)
Quarter: 2012Q1

REPORT INFORMATION
  Report Type: 
  Country: None (occurrence: None)
  Receive Date: 20120305
  Receipt Date: 20120302
  Transmission Date: 20120608
  Serious: Yes (Death)
  Sender: FDA-Public Use
  Company Number: PHHY2012NL018221

PATIENT
  Sex: Male

DRUGS (4)
  1. ZOMETA [Suspect]
     Indication: PROSTATE CANCER METASTATIC
     Dosage: 4 MG, PER 100ML EVERY 28 DAYS
     Route: 042
  2. ZOMETA [Suspect]
     Dosage: 4 MG, PER 100ML EVERY 28 DAYS
     Route: 042
     Dates: start: 20110907
  3. ZOMETA [Suspect]
     Dosage: 4 MG, PER 100ML EVERY 28 DAYS
     Route: 042
     Dates: start: 20090605
  4. ZOMETA [Suspect]
     Dosage: 4 MG, PER 100ML EVERY 28 DAYS
     Route: 042
     Dates: start: 20111006, end: 20111001

REACTIONS (1)
  - DEATH [None]
